FAERS Safety Report 16967543 (Version 3)
Quarter: 2019Q4

REPORT INFORMATION
  Report Type: Report from Study
  Country: BD (occurrence: BD)
  Receive Date: 20191028
  Receipt Date: 20191112
  Transmission Date: 20200122
  Serious: Yes (Death, Hospitalization, Other)
  Sender: FDA-Public Use
  Company Number: NVSC2019BD017947

PATIENT
  Age: 95 Year
  Sex: Male

DRUGS (2)
  1. EXELON [Suspect]
     Active Substance: RIVASTIGMINE TARTRATE
     Indication: DEMENTIA
     Dosage: 1 DF, QD
     Route: 048
     Dates: start: 201908
  2. EXELON PATCH [Suspect]
     Active Substance: RIVASTIGMINE
     Indication: DEMENTIA
     Dosage: 4.6 MG, QD PATCH 5 (CM2)
     Route: 062
     Dates: start: 20190906

REACTIONS (10)
  - Death [Fatal]
  - Dementia [Unknown]
  - Death [Unknown]
  - Respiratory distress [Not Recovered/Not Resolved]
  - Pneumonia [Recovering/Resolving]
  - Oedema peripheral [Not Recovered/Not Resolved]
  - Cerebrovascular accident [Recovering/Resolving]
  - Asthenia [Unknown]
  - Hypoxia [Not Recovered/Not Resolved]
  - Heart rate irregular [Not Recovered/Not Resolved]

NARRATIVE: CASE EVENT DATE: 20190812
